FAERS Safety Report 5010449-4 (Version None)
Quarter: 2006Q2

REPORT INFORMATION
  Report Type: 
  Country: None (occurrence: None)
  Receive Date: 20060523
  Receipt Date: 20060523
  Transmission Date: 20061013
  Serious: No
  Sender: FDA-Public Use
  Company Number: None

PATIENT
  Age: 70 Year
  Sex: Female

DRUGS (1)
  1. HYDROMORPHONE HCL [Suspect]
     Indication: PAIN
     Dosage: IM
     Route: 030
     Dates: start: 20051105

REACTIONS (5)
  - BLOOD PRESSURE DECREASED [None]
  - IMPLANTABLE DEFIBRILLATOR INSERTION [None]
  - INCORRECT ROUTE OF DRUG ADMINISTRATION [None]
  - LETHARGY [None]
  - RESPIRATORY DEPRESSION [None]
